FAERS Safety Report 8402824-2 (Version None)
Quarter: 2012Q2

REPORT INFORMATION
  Report Type: 
  Country: None (occurrence: None)
  Receive Date: 20120323
  Receipt Date: 20110914
  Transmission Date: 20120825
  Serious: Yes (Other)
  Sender: FDA-Public Use
  Company Number: 163-21880-11040928

PATIENT
  Age: 78 Year
  Sex: Female

DRUGS (10)
  1. ASCRIPTIN (ASCRIPTIN) [Concomitant]
  2. OMEPRAZOLE [Concomitant]
  3. PERCOCET [Concomitant]
  4. LASIX [Concomitant]
  5. SUCRALATE (SUCRALATE) [Concomitant]
  6. MIRALAX [Concomitant]
  7. PENTOXIFYLLINE [Concomitant]
  8. PRILOSEC [Concomitant]
  9. REVLIMID [Suspect]
     Indication: MULTIPLE MYELOMA
     Dosage: 10 MG, DAILY X 21 DAYS, PO 15 MG, DAILY, PO
     Route: 048
     Dates: start: 20100510
  10. REVLIMID [Suspect]
     Indication: MULTIPLE MYELOMA
     Dosage: 10 MG, DAILY X 21 DAYS, PO 15 MG, DAILY, PO
     Route: 048
     Dates: start: 20110401

REACTIONS (3)
  - ANAEMIA [None]
  - MULTIPLE MYELOMA [None]
  - RENAL IMPAIRMENT [None]
